FAERS Safety Report 9625450 (Version 1)
Quarter: 2013Q4

REPORT INFORMATION
  Report Type: Report from Study
  Country: CA (occurrence: CA)
  Receive Date: 20131016
  Receipt Date: 20131016
  Transmission Date: 20140711
  Serious: Yes (Other)
  Sender: FDA-Public Use
  Company Number: CA-JNJFOC-20131006115

PATIENT
  Sex: Female
  Weight: 83.4 kg

DRUGS (4)
  1. REMICADE [Suspect]
     Indication: CROHN^S DISEASE
     Route: 042
     Dates: start: 20120618
  2. TYLENOL [Concomitant]
     Indication: PREMEDICATION
     Route: 048
  3. HYDROCORTISONE [Concomitant]
     Indication: PREMEDICATION
     Route: 042
  4. AERIUS [Concomitant]
     Indication: PREMEDICATION
     Route: 048

REACTIONS (2)
  - Fibromyalgia [Unknown]
  - Gingivitis [Unknown]
